FAERS Safety Report 12328353 (Version 3)
Quarter: 2016Q3

REPORT INFORMATION
  Report Type: Spontaneous
  Country: BR (occurrence: BR)
  Receive Date: 20160503
  Receipt Date: 20160705
  Transmission Date: 20161109
  Serious: Yes (Hospitalization, Other)
  Sender: FDA-Public Use
  Company Number: BR-PFIZER INC-2016240067

PATIENT
  Age: 43 Year
  Sex: Female

DRUGS (1)
  1. DOSTINEX [Suspect]
     Active Substance: CABERGOLINE
     Indication: PITUITARY TUMOUR
     Dosage: 0.5 MG, 2X/WEEK (1 TABLET AFTER LUNCH) (MONDAY AND THURSDAY)
     Dates: start: 20081124

REACTIONS (10)
  - Seizure [Recovered/Resolved]
  - Myocardial infarction [Recovered/Resolved]
  - Anaemia [Recovered/Resolved]
  - Aneurysm [Recovered/Resolved]
  - Mobility decreased [Not Recovered/Not Resolved]
  - Pituitary tumour [Not Recovered/Not Resolved]
  - Aneurysm [Not Recovered/Not Resolved]
  - Memory impairment [Not Recovered/Not Resolved]
  - Cerebrovascular accident [Recovered/Resolved with Sequelae]
  - Hypothyroidism [Not Recovered/Not Resolved]

NARRATIVE: CASE EVENT DATE: 2009
